FAERS Safety Report 4943291-0 (Version None)
Quarter: 2006Q1

REPORT INFORMATION
  Report Type: 
  Country: None (occurrence: None)
  Receive Date: 20060222
  Receipt Date: 20060206
  Transmission Date: 20060701
  Serious: Yes (Other)
  Sender: FDA-Public Use
  Company Number: GAM-015-06-USA

PATIENT
  Sex: Female

DRUGS (1)
  1. OCTAGAM [Suspect]
     Dosage: 40 GRAMS IV
     Route: 042

REACTIONS (3)
  - HYPOTENSION [None]
  - INFUSION RELATED REACTION [None]
  - SHOCK [None]
